FAERS Safety Report 10028057 (Version 1)
Quarter: 2014Q1

REPORT INFORMATION
  Report Type: Spontaneous
  Country: FR (occurrence: None)
  Receive Date: 20140304
  Receipt Date: 20140304
  Transmission Date: 20141002
  Serious: Yes (Life-Threatening)
  Sender: FDA-Public Use
  Company Number: TPU2014-00048

PATIENT
  Age: 90 Year
  Sex: Female

DRUGS (5)
  1. VERSATIS [Suspect]
     Indication: POST HERPETIC NEURALGIA
     Route: 061
     Dates: start: 20131211, end: 20131220
  2. LYRICA (PREGABALIN) [Suspect]
     Route: 048
     Dates: start: 20131203, end: 20131220
  3. VALACICLOVIR (VALACICLOVIR) [Concomitant]
  4. CIPROFLOXACINE (CIPROFLOXACIN) [Concomitant]
  5. OFLOXACINE (OFLOXACIN) [Concomitant]

REACTIONS (4)
  - Nausea [None]
  - Decreased appetite [None]
  - Vomiting [None]
  - Hypokalaemia [None]
